FAERS Safety Report 8803356 (Version 1)
Quarter: 2012Q4

REPORT INFORMATION
  Report Type: 
  Country: FR (occurrence: FR)
  Receive Date: 20120924
  Receipt Date: 20120924
  Transmission Date: 20130627
  Serious: Yes (Hospitalization)
  Sender: FDA-Public Use
  Company Number: FR-JNJFOC-20120906090

PATIENT
  Age: 62 Year
  Sex: Male

DRUGS (2)
  1. REMICADE [Suspect]
     Indication: COLITIS ULCERATIVE
     Route: 042
     Dates: start: 20080505
  2. IMUREL [Suspect]
     Indication: COLITIS ULCERATIVE
     Route: 065
     Dates: start: 20070717, end: 20110512

REACTIONS (2)
  - Squamous cell carcinoma [Recovered/Resolved]
  - B-cell lymphoma [Unknown]
